FAERS Safety Report 8783756 (Version 1)
Quarter: 2012Q4

REPORT INFORMATION
  Report Type: Spontaneous
  Country: US (occurrence: None)
  Receive Date: 20120829
  Receipt Date: 20120829
  Transmission Date: 20130627
  Serious: Yes (Hospitalization)
  Sender: FDA-Public Use
  Company Number: 2012AL000073

PATIENT
  Age: 77 Year
  Sex: Male

DRUGS (1)
  1. FOLOTYN [Suspect]
     Indication: ANGIOIMMUNOBLASTIC T-CELL LYMPHOMA
     Route: 042
     Dates: start: 2011, end: 2012

REACTIONS (2)
  - Atrial fibrillation [None]
  - Stomatitis [None]
